FAERS Safety Report 4732179-6 (Version None)
Quarter: 2005Q3

REPORT INFORMATION
  Report Type: 
  Country: None (occurrence: None)
  Receive Date: 20050721
  Receipt Date: 20050520
  Transmission Date: 20060218
  Serious: No
  Sender: FDA-Public Use
  Company Number: 2005SP001215

PATIENT
  Age: 84 Year
  Sex: Female
  Weight: 83.9154 kg

DRUGS (2)
  1. LUNESTA [Suspect]
     Indication: INSOMNIA
     Dosage: 1 MG; HS; ORAL, 1 MG;X1;ORAL
     Route: 048
     Dates: start: 20050519, end: 20050519
  2. LUNESTA [Suspect]
     Indication: INSOMNIA
     Dosage: 1 MG; HS; ORAL, 1 MG;X1;ORAL
     Route: 048
     Dates: start: 20050519

REACTIONS (1)
  - INITIAL INSOMNIA [None]
